FAERS Safety Report 19229107 (Version 2)
Quarter: 2023Q2

REPORT INFORMATION
  Report Type: Spontaneous
  Country: US (occurrence: US)
  Receive Date: 20210507
  Receipt Date: 20230517
  Transmission Date: 20230721
  Serious: Yes (Hospitalization, Other)
  Sender: FDA-Public Use
  Company Number: US-ORPHANEU-2019008218

PATIENT

DRUGS (2)
  1. CYSTADANE [Suspect]
     Active Substance: BETAINE
     Indication: Vitamin B12 deficiency
     Dosage: 10 SCOOPS, TWICE DAILY
     Route: 048
  2. HYDROXOCOBALAMIN [Concomitant]
     Active Substance: HYDROXOCOBALAMIN
     Indication: Product used for unknown indication
     Dosage: 0.7 MILLILITER, QD (30 MG/ML)

REACTIONS (5)
  - Influenza [Unknown]
  - Mental status changes [Recovered/Resolved]
  - Meningitis [Unknown]
  - Blood homocysteine increased [Unknown]
  - Treatment noncompliance [Recovered/Resolved]

NARRATIVE: CASE EVENT DATE: 20190101
